FAERS Safety Report 14459435 (Version 1)
Quarter: 2018Q1

REPORT INFORMATION
  Report Type: Other
  Country: US (occurrence: US)
  Receive Date: 20180130
  Receipt Date: 20180130
  Transmission Date: 20180509
  Serious: No
  Sender: FDA-Public Use
  Company Number: US-ACORDA-ACO_138443_2017

PATIENT
  Sex: Female

DRUGS (5)
  1. COPAXONE [Concomitant]
     Active Substance: GLATIRAMER ACETATE
     Indication: PRODUCT USED FOR UNKNOWN INDICATION
     Dosage: UNK, 3X/WK
     Route: 065
  2. TRAMADOL. [Concomitant]
     Active Substance: TRAMADOL
     Indication: PRODUCT USED FOR UNKNOWN INDICATION
     Dosage: UNK
     Route: 065
  3. AMPYRA [Suspect]
     Active Substance: DALFAMPRIDINE
     Indication: MULTIPLE SCLEROSIS
     Dosage: 10 MG, Q 12 HRS (ONE IN AM AND ONE IN PM)
     Route: 048
     Dates: start: 20170426
  4. AMPYRA [Suspect]
     Active Substance: DALFAMPRIDINE
     Indication: GAIT DISTURBANCE
     Dosage: 10 MG, Q 12 HRS (ONE IN AM AND ONE IN PM)
     Route: 048
  5. IBUPROFEN. [Concomitant]
     Active Substance: IBUPROFEN
     Indication: PRODUCT USED FOR UNKNOWN INDICATION
     Dosage: UNK, 3X/WK
     Route: 065

REACTIONS (13)
  - Feeling abnormal [Unknown]
  - Hypokinesia [Unknown]
  - Fall [Unknown]
  - Back pain [Unknown]
  - Multiple sclerosis relapse [Unknown]
  - Joint lock [Unknown]
  - Abdominal pain [Unknown]
  - Limb discomfort [Unknown]
  - Drug ineffective [Unknown]
  - Gait disturbance [Unknown]
  - Mobility decreased [Recovering/Resolving]
  - Joint injury [Unknown]
  - Pain in extremity [Unknown]
